FAERS Safety Report 18941160 (Version 1)
Quarter: 2021Q1

REPORT INFORMATION
  Report Type: Spontaneous
  Country: ZA (occurrence: ZA)
  Receive Date: 20210225
  Receipt Date: 20210225
  Transmission Date: 20210420
  Serious: Yes (Hospitalization)
  Sender: FDA-Public Use
  Company Number: ZA-STRIDES ARCOLAB LIMITED-2021SP002433

PATIENT
  Age: 33 Year
  Sex: Female

DRUGS (2)
  1. MYPAID FORTE [Suspect]
     Active Substance: ACETAMINOPHEN\IBUPROFEN
     Indication: MYALGIA
     Dosage: UNK
     Route: 065
  2. DICLOFENAC [Suspect]
     Active Substance: DICLOFENAC
     Indication: MYALGIA
     Dosage: UNK
     Route: 030

REACTIONS (2)
  - Rhabdomyolysis [Recovered/Resolved]
  - Glomerular filtration rate decreased [Recovered/Resolved]
